FAERS Safety Report 8521577-0 (Version None)
Quarter: 2012Q3

REPORT INFORMATION
  Report Type: 
  Country: None (occurrence: None)
  Receive Date: 20120719
  Receipt Date: 20120714
  Transmission Date: 20120928
  Serious: Yes (Death, Other)
  Sender: FDA-Public Use
  Company Number: PHHY2012JP061539

PATIENT
  Age: 43 Year
  Sex: Female

DRUGS (7)
  1. ACYCLOVIR [Concomitant]
  2. THIOTEPA [Concomitant]
     Indication: BONE MARROW CONDITIONING REGIMEN
  3. METHOTREXATE [Suspect]
  4. ANTIBIOTICS [Concomitant]
  5. CYCLOSPORINE [Suspect]
     Indication: PROPHYLAXIS AGAINST GRAFT VERSUS HOST DISEASE
  6. IMMUNE GLOBULIN NOS [Concomitant]
  7. CYCLOPHOSPHAMIDE [Concomitant]
     Indication: BONE MARROW CONDITIONING REGIMEN

REACTIONS (2)
  - CHRONIC GRAFT VERSUS HOST DISEASE [None]
  - PNEUMOCYSTIS JIROVECI PNEUMONIA [None]
